FAERS Safety Report 6097555-0 (Version None)
Quarter: 2009Q1

REPORT INFORMATION
  Report Type: 
  Country: None (occurrence: None)
  Receive Date: 20090227
  Receipt Date: 20090210
  Transmission Date: 20090719
  Serious: No
  Sender: FDA-Public Use
  Company Number: A0754791A

PATIENT
  Age: 43 Year
  Sex: Female

DRUGS (4)
  1. IMITREX [Suspect]
     Indication: MIGRAINE
     Dosage: 6MG AS REQUIRED
     Route: 058
  2. GSK AUTOINJECTOR [Suspect]
     Indication: DRUG USE FOR UNKNOWN INDICATION
  3. IMITREX [Suspect]
     Dosage: 50MG AS REQUIRED
     Route: 048
  4. NO CONCURRENT MEDICATION [Concomitant]

REACTIONS (5)
  - DEVICE MALFUNCTION [None]
  - DRUG INEFFECTIVE [None]
  - NASAL DISCOMFORT [None]
  - PHARYNGEAL OEDEMA [None]
  - PRODUCT QUALITY ISSUE [None]
